FAERS Safety Report 9396605 (Version 2)
Quarter: 2013Q3

REPORT INFORMATION
  Report Type: Spontaneous
  Country: JP (occurrence: JP)
  Receive Date: 20130711
  Receipt Date: 20130719
  Transmission Date: 20140515
  Serious: Yes (Death)
  Sender: FDA-Public Use
  Company Number: JP-OTSUKA-JP-2013-12516

PATIENT
  Age: 85 Year
  Sex: Male
  Weight: 40 kg

DRUGS (12)
  1. SAMSCA [Suspect]
     Indication: CARDIAC FAILURE
     Dosage: 3.75 MG MILLIGRAM(S), QAM
     Route: 048
     Dates: start: 20130703, end: 20130703
  2. HANP [Concomitant]
     Dosage: UNK
     Route: 041
     Dates: start: 20130703
  3. LASIX [Concomitant]
     Indication: CARDIAC FAILURE
     Dosage: UNK
     Route: 065
     Dates: end: 20130703
  4. ALDACTONE A [Concomitant]
     Indication: CARDIAC FAILURE
     Dosage: UNK
     Route: 048
     Dates: end: 20130703
  5. TAKEPRON [Concomitant]
     Dosage: 15 MG MILLIGRAM(S), QAM
     Route: 048
     Dates: end: 20130703
  6. DIGOSIN [Concomitant]
     Dosage: 0.125 MG MILLIGRAM(S), QAM
     Route: 048
     Dates: end: 20130703
  7. MUCOSAL-L [Concomitant]
     Dosage: 45 MG MILLIGRAM(S), QPM
     Route: 048
     Dates: end: 20130703
  8. LENDORMIN [Concomitant]
     Dosage: 0.25 MG MILLIGRAM(S), HS
     Route: 048
     Dates: end: 20130703
  9. ALLELOCK [Concomitant]
     Dosage: 10 MG MILLIGRAM(S), DAILY DOSE
     Route: 048
     Dates: end: 20130703
  10. URIEF [Concomitant]
     Dosage: 8 MG MILLIGRAM(S), DAILY DOSE
     Route: 048
     Dates: end: 20130703
  11. MAGLAX [Concomitant]
     Dosage: 990 MG MILLIGRAM(S), DAILY DOSE
     Route: 048
     Dates: end: 20130703
  12. HOKUNALIN [Concomitant]
     Dosage: 1 DF DOSAGE FORM, QD
     Route: 061
     Dates: end: 20130703

REACTIONS (3)
  - Death [Fatal]
  - Respiratory arrest [Fatal]
  - Cardiac arrest [Fatal]
